FAERS Safety Report 4349240-0 (Version None)
Quarter: 2004Q2

REPORT INFORMATION
  Report Type: 
  Country: None (occurrence: None)
  Receive Date: 20040427
  Receipt Date: 20030728
  Transmission Date: 20050107
  Serious: Yes (Hospitalization)
  Sender: FDA-Public Use
  Company Number: 000611

PATIENT
  Age: 69 Year
  Sex: Female

DRUGS (1)
  1. ZEVALIN [Suspect]
     Indication: NON-HODGKIN'S LYMPHOMA
     Dosage: RITUXAN DOSE 1, INTRAVENOUS; RITUXAN DOSE 2, INTRAVENOUS; 32 MCI, Y-[90] ZEVALIN, INTRAVENOUS
     Route: 042

REACTIONS (2)
  - PYREXIA [None]
  - THROMBOCYTOPENIA [None]
